FAERS Safety Report 12942361 (Version 1)
Quarter: 2016Q4

REPORT INFORMATION
  Report Type: Spontaneous
  Country: US (occurrence: US)
  Receive Date: 20161114
  Receipt Date: 20161114
  Transmission Date: 20170207
  Serious: No
  Sender: FDA-Public Use
  Company Number: US-ASTRAZENECA-2016SF15932

PATIENT
  Age: 82 Year

DRUGS (2)
  1. PULMICORT FLEXHALER [Suspect]
     Active Substance: BUDESONIDE
     Indication: CHRONIC OBSTRUCTIVE PULMONARY DISEASE
     Dosage: 180 MCG
     Route: 055
     Dates: start: 201608
  2. PULMICORT FLEXHALER [Suspect]
     Active Substance: BUDESONIDE
     Indication: ASTHMA
     Dosage: 180 MCG
     Route: 055
     Dates: start: 201608

REACTIONS (2)
  - Chronic obstructive pulmonary disease [Unknown]
  - Confusional state [Unknown]

NARRATIVE: CASE EVENT DATE: 201608
